FAERS Safety Report 8848114 (Version 2)
Quarter: 2015Q1

REPORT INFORMATION
  Report Type: Report from Study
  Country: US (occurrence: US)
  Receive Date: 20121018
  Receipt Date: 20150127
  Transmission Date: 20150721
  Serious: Yes (Other)
  Sender: FDA-Public Use
  Company Number: US-ROCHE-1138630

PATIENT
  Sex: Male
  Weight: 36.6 kg

DRUGS (11)
  1. NUTROPIN [Suspect]
     Active Substance: SOMATROPIN
     Indication: GROWTH HORMONE DEFICIENCY
  2. DEPAKOTE [Concomitant]
     Active Substance: DIVALPROEX SODIUM
     Route: 048
  3. CEFIXIME. [Concomitant]
     Active Substance: CEFIXIME
  4. CLONIDINE. [Concomitant]
     Active Substance: CLONIDINE
  5. HUMATROPE [Concomitant]
     Active Substance: SOMATROPIN
     Route: 065
     Dates: start: 199306, end: 199512
  6. DILANTIN [Concomitant]
     Active Substance: PHENYTOIN
  7. NUTROPIN [Suspect]
     Active Substance: SOMATROPIN
     Indication: BODY HEIGHT BELOW NORMAL
     Route: 058
     Dates: start: 199207
  8. DEXEDRINE [Concomitant]
     Active Substance: DEXTROAMPHETAMINE SULFATE
  9. SUPRAX (UNITED STATES) [Concomitant]
  10. ZYPREXA [Concomitant]
     Active Substance: OLANZAPINE
  11. CYLERT [Concomitant]
     Active Substance: PEMOLINE

REACTIONS (8)
  - Fatigue [Unknown]
  - Cardiac murmur [Unknown]
  - Abnormal behaviour [Unknown]
  - Seizure [Unknown]
  - Ear pain [Unknown]
  - Growth retardation [Unknown]
  - Abdominal pain upper [Unknown]
  - Oropharyngeal pain [Unknown]
